FAERS Safety Report 6864741-9 (Version None)
Quarter: 2010Q3

REPORT INFORMATION
  Report Type: 
  Country: None (occurrence: None)
  Receive Date: 20100721
  Receipt Date: 20080331
  Transmission Date: 20110219
  Serious: No
  Sender: FDA-Public Use
  Company Number: US-PFIZER INC-2008029355

PATIENT
  Sex: Female
  Weight: 86.363 kg

DRUGS (2)
  1. CHANTIX [Suspect]
     Indication: SMOKING CESSATION THERAPY
     Route: 048
     Dates: start: 20080320, end: 20080330
  2. IBUPROFEN [Concomitant]
     Route: 048

REACTIONS (3)
  - BODY TEMPERATURE INCREASED [None]
  - ERYTHEMA [None]
  - RASH [None]
